FAERS Safety Report 7903132-6 (Version None)
Quarter: 2011Q4

REPORT INFORMATION
  Report Type: 
  Country: None (occurrence: None)
  Receive Date: 20111109
  Receipt Date: 20111028
  Transmission Date: 20120403
  Serious: Yes (Hospitalization)
  Sender: FDA-Public Use
  Company Number: JP-ELI_LILLY_AND_COMPANY-JP201108004711

PATIENT
  Age: 75 Year
  Sex: Female

DRUGS (3)
  1. TOCILIZUMAB [Concomitant]
  2. FORTEO [Suspect]
     Dosage: UNK UNK, QD
     Route: 058
  3. FORTEO [Suspect]
     Dosage: UNK, QD
     Route: 058
     Dates: start: 20111017

REACTIONS (2)
  - INJECTION SITE HAEMATOMA [None]
  - COMPRESSION FRACTURE [None]
